FAERS Safety Report 9927754 (Version 2)
Quarter: 2014Q1

REPORT INFORMATION
  Report Type: Report from Study
  Country: CL (occurrence: CL)
  Receive Date: 20140227
  Receipt Date: 20140227
  Transmission Date: 20141002
  Serious: Yes (Hospitalization, Other)
  Sender: FDA-Public Use
  Company Number: CL-BRISTOL-MYERS SQUIBB COMPANY-19723360

PATIENT
  Age: 43 Year
  Sex: Female

DRUGS (5)
  1. ORENCIA FOR INJ 250 MG/VIAL [Suspect]
     Indication: ANKYLOSING SPONDYLITIS
     Dosage: INTERRUPTED ON 28OCT2013.
     Route: 042
     Dates: start: 20130802, end: 20140113
  2. ESZOPICLONE [Concomitant]
  3. LANSOPRAZOLE [Concomitant]
  4. VALSARTAN [Concomitant]
  5. CYCLOBENZAPRINE [Concomitant]

REACTIONS (5)
  - Intracranial aneurysm [Recovered/Resolved]
  - Ankylosing spondylitis [Unknown]
  - Nasal odour [Recovering/Resolving]
  - Joint swelling [Recovering/Resolving]
  - Alopecia [Recovering/Resolving]
